FAERS Safety Report 5205269-1 (Version None)
Quarter: 2007Q1

REPORT INFORMATION
  Report Type: 
  Country: None (occurrence: None)
  Receive Date: 20070110
  Receipt Date: 20070102
  Transmission Date: 20070707
  Serious: Yes (Hospitalization, Other)
  Sender: FDA-Public Use
  Company Number: US-PFIZER INC-2007001364

PATIENT
  Sex: Female
  Weight: 59 kg

DRUGS (2)
  1. GEODON [Suspect]
     Indication: BIPOLAR DISORDER
  2. CLONAPIN [Concomitant]

REACTIONS (4)
  - BRUXISM [None]
  - DYSKINESIA [None]
  - DYSTONIA [None]
  - EYE ROLLING [None]
